FAERS Safety Report 9518488 (Version 1)
Quarter: 2013Q1

REPORT INFORMATION
  Report Type: Spontaneous
  Country: US (occurrence: None)
  Receive Date: 20130305
  Receipt Date: 20130305
  Transmission Date: 20140127
  Serious: Yes (Other)
  Sender: FDA-Public Use
  Company Number: 163-21880-12064015

PATIENT
  Age: 75 Year
  Sex: 0
  Weight: 61.24 kg

DRUGS (7)
  1. REVLIMID (LENALIDOMIDE) [Suspect]
     Indication: PLASMA CELL MYELOMA
     Dosage: 25 MG, 21 IN 28 D, PO
     Route: 048
     Dates: start: 20111022, end: 201206
  2. ADALAT (NIFEDIPINE) [Concomitant]
  3. LEVOTHYROXINE(LEVOTHYROXINE) [Concomitant]
  4. VITAMINS [Suspect]
  5. PAXIL(PAROXETINE HDYROCHLORIDE) [Concomitant]
  6. DEXAMETHASONE [Concomitant]
  7. METFORMIN (METFORMIN) [Concomitant]

REACTIONS (3)
  - Epistaxis [None]
  - Blood test abnormal [None]
  - Blood glucose increased [None]
